FAERS Safety Report 7649047-2 (Version None)
Quarter: 2011Q3

REPORT INFORMATION
  Report Type: 
  Country: None (occurrence: None)
  Receive Date: 20110726
  Receipt Date: 20110715
  Transmission Date: 20111222
  Serious: Yes (Death)
  Sender: FDA-Public Use
  Company Number: 1000022264

PATIENT
  Age: 90 Year
  Sex: Male

DRUGS (5)
  1. STAYBLA (IMIDAFENACIN) (IMIDAFENACIN) [Concomitant]
  2. METHYCOBAL (MECOBALAMIN) (MECOBALAMIN) [Concomitant]
  3. ARICEPT [Concomitant]
  4. MEMANTINE [Suspect]
     Indication: DEMENTIA ALZHEIMER'S TYPE
     Dosage: 20 MG, ORAL
     Route: 048
     Dates: start: 20110710
  5. MEMANTINE [Suspect]
     Indication: DEMENTIA ALZHEIMER'S TYPE
     Dosage: 5 MG, ORAL
     Route: 048
     Dates: start: 20110618, end: 20110624

REACTIONS (4)
  - PAIN [None]
  - SUBARACHNOID HAEMORRHAGE [None]
  - OEDEMA PERIPHERAL [None]
  - BLOOD PRESSURE SYSTOLIC INCREASED [None]
